FAERS Safety Report 5362328-0 (Version None)
Quarter: 2007Q2

REPORT INFORMATION
  Report Type: 
  Country: None (occurrence: None)
  Receive Date: 20070619
  Receipt Date: 20070615
  Transmission Date: 20071010
  Serious: Yes (Other)
  Sender: FDA-Public Use
  Company Number: D0053077A

PATIENT
  Age: 55 Year
  Sex: Female
  Weight: 68 kg

DRUGS (2)
  1. ZYBAN [Suspect]
     Dosage: 150MG IN THE MORNING
     Route: 048
     Dates: start: 20070219, end: 20070220
  2. LIVIELLA [Concomitant]
     Route: 065
     Dates: start: 20010101

REACTIONS (5)
  - DIZZINESS [None]
  - HYPERTENSION [None]
  - ILLUSION [None]
  - PHARMACEUTICAL PRODUCT COMPLAINT [None]
  - TACHYCARDIA [None]
